FAERS Safety Report 8532768-7 (Version None)
Quarter: 2012Q3

REPORT INFORMATION
  Report Type: 
  Country: None (occurrence: None)
  Receive Date: 20120724
  Receipt Date: 20120719
  Transmission Date: 20120928
  Serious: Yes (Hospitalization, Other)
  Sender: FDA-Public Use
  Company Number: PHHY2012DE037659

PATIENT
  Sex: Male
  Weight: 94 kg

DRUGS (27)
  1. INHIBITORS OF NSAID GROUP [Concomitant]
  2. METOPROLOL SUCCINATE [Concomitant]
     Indication: HYPERTENSION
     Dosage: 190 MG/DAY
     Route: 048
     Dates: start: 20060601
  3. BERLINSULIN [Concomitant]
     Indication: DIABETES MELLITUS
     Dosage: 26 IU/DAY
     Route: 058
     Dates: start: 20070115
  4. ACE INHIBITORS [Concomitant]
  5. RASILEZ [Suspect]
     Dosage: 150 MG/DAY
     Route: 048
     Dates: start: 20110318, end: 20120215
  6. TORSEMIDE [Concomitant]
     Dosage: 20 MG/DAY
     Route: 048
     Dates: start: 20120411
  7. CALCIUM CHANNEL BLOCKERS [Concomitant]
     Dates: start: 20120412
  8. VASODILATORS USED IN CARDIAC DISEASES [Concomitant]
     Dates: end: 20110617
  9. ASPIRIN [Concomitant]
     Dosage: 100 MG/DAY
     Dates: start: 20110615
  10. SIMVASTATIN [Concomitant]
     Dosage: 20 MG
     Dates: start: 20110615, end: 20110714
  11. TORSEMIDE [Concomitant]
     Indication: HYPERTENSION
     Dosage: 10 MG/DAY
     Dates: start: 20070101, end: 20120410
  12. DOXAZOSIN MESYLATE [Concomitant]
     Indication: HYPERTENSION
     Dosage: 4MG/DAY
     Route: 048
     Dates: start: 20110317
  13. BERLINSULIN BASAL [Concomitant]
     Indication: DIABETES MELLITUS
     Dosage: 16 IU/DAY
     Route: 058
     Dates: start: 20090615
  14. THIENOPYRIDINE [Concomitant]
  15. DIURETICS [Concomitant]
  16. PENTAERYTHRITOL TETRANITRATE [Concomitant]
     Indication: ANGINA PECTORIS
     Dosage: 160 MG/DAY
     Route: 048
     Dates: start: 20110317, end: 20110616
  17. PLAVIX [Concomitant]
     Dosage: 75 MG/DAY
     Dates: start: 20110615, end: 20110714
  18. RASILEZ [Suspect]
     Dosage: 300 MG/DAY
     Route: 048
     Dates: start: 20090112, end: 20120317
  19. HMG COA REDUCTASE INHIBITORS [Concomitant]
  20. RASILEZ [Suspect]
     Indication: HYPERTENSION
     Dosage: 150 MG/DAY
     Route: 048
     Dates: start: 20081124, end: 20090111
  21. ACE INHIBITORS [Concomitant]
     Dates: start: 20120412
  22. BETA BLOCKING AGENTS [Concomitant]
  23. CARMEN ACE [Concomitant]
     Indication: HYPERTENSION
     Dosage: 20 PLUS 40 MG PER DAY
     Route: 048
     Dates: start: 20081124, end: 20120411
  24. METFORMIN HYDROCHLORIDE [Concomitant]
     Indication: DIABETES MELLITUS
     Dosage: 2000 MG/DAY
     Route: 048
     Dates: start: 20070828
  25. PLATELET AGGREGATION INHIBITORS [Concomitant]
  26. MOLSIHEXAL [Concomitant]
     Dosage: 4 MG/DAY
     Dates: start: 20070101, end: 20110617
  27. CARMEN ACE [Concomitant]
     Dosage: 10 PLUS 20 MG PER DAY
     Route: 048
     Dates: start: 20120412

REACTIONS (4)
  - CORONARY ARTERY DISEASE [None]
  - BLOOD PRESSURE SYSTOLIC INCREASED [None]
  - AORTIC STENOSIS [None]
  - DYSPNOEA [None]
